FAERS Safety Report 7293368-2 (Version None)
Quarter: 2011Q1

REPORT INFORMATION
  Report Type: 
  Country: None (occurrence: None)
  Receive Date: 20110215
  Receipt Date: 20110204
  Transmission Date: 20110831
  Serious: Yes (Death, Hospitalization)
  Sender: FDA-Public Use
  Company Number: GB-TEVA-239388ISR

PATIENT
  Sex: Male

DRUGS (10)
  1. PREDNISOLONE [Suspect]
     Indication: PROSTATE CANCER METASTATIC
     Route: 048
     Dates: start: 20091124
  2. ATENOLOL [Concomitant]
     Indication: HYPERTENSION
     Route: 048
     Dates: start: 20070706
  3. IRBESARTAN [Concomitant]
     Indication: HYPERTENSION
     Route: 048
     Dates: start: 20070713
  4. ABTRATERONE ACETATE/PLACEBO [Suspect]
     Indication: PROSTATE CANCER METASTATIC
     Route: 048
     Dates: start: 20091124, end: 20100318
  5. DICLOFENAC SODIUM [Concomitant]
     Indication: DISEASE PROGRESSION
     Route: 048
     Dates: start: 20091007
  6. LOPERAMIDE [Concomitant]
     Indication: DIARRHOEA
     Route: 048
     Dates: start: 20100223
  7. PROCHLORPERAZINE [Concomitant]
     Indication: VOMITING
     Route: 030
     Dates: start: 20100318
  8. LEKOVIT CA [Concomitant]
     Route: 048
     Dates: start: 20050131
  9. LANSOPRAZOLE [Concomitant]
     Indication: GASTROOESOPHAGEAL REFLUX DISEASE
     Route: 048
     Dates: start: 20090420
  10. CYCLIZINE [Concomitant]
     Indication: ANTIEMETIC SUPPORTIVE CARE
     Route: 030
     Dates: start: 20100318

REACTIONS (3)
  - INTESTINAL ISCHAEMIA [None]
  - PROSTATE CANCER METASTATIC [None]
  - RENAL FAILURE [None]
